FAERS Safety Report 6665450-1 (Version None)
Quarter: 2010Q2

REPORT INFORMATION
  Report Type: 
  Country: None (occurrence: None)
  Receive Date: 20100402
  Receipt Date: 20100323
  Transmission Date: 20101027
  Serious: Yes (Other)
  Sender: FDA-Public Use
  Company Number: US-PFIZER INC-2010037549

PATIENT
  Sex: Female

DRUGS (1)
  1. XANAX [Suspect]

REACTIONS (7)
  - ALLERGY TO CHEMICALS [None]
  - AMNESIA [None]
  - BREAST OPERATION [None]
  - DYSGEUSIA [None]
  - DYSKINESIA [None]
  - FIBROMYALGIA [None]
  - MUSCLE SPASMS [None]
